FAERS Safety Report 7967018-3 (Version None)
Quarter: 2011Q4

REPORT INFORMATION
  Report Type: 
  Country: None (occurrence: None)
  Receive Date: 20111209
  Receipt Date: 20111130
  Transmission Date: 20120403
  Serious: Yes (Other)
  Sender: FDA-Public Use
  Company Number: AU-JNJFOC-20111106792

PATIENT
  Sex: Female

DRUGS (8)
  1. STELARA [Suspect]
     Route: 058
     Dates: start: 20110417
  2. STELARA [Suspect]
     Route: 058
     Dates: start: 20110123
  3. STELARA [Suspect]
     Route: 058
     Dates: start: 20110710
  4. GLYADE [Concomitant]
  5. ANTI-HYPERTENSIVE MEDICATION [Concomitant]
  6. DIFORMIN [Concomitant]
  7. STELARA [Suspect]
     Indication: PSORIASIS
     Route: 058
     Dates: start: 20101226
  8. STELARA [Suspect]
     Route: 058
     Dates: start: 20111002

REACTIONS (2)
  - OEDEMA PERIPHERAL [None]
  - CELLULITIS [None]
